FAERS Safety Report 4401776-X (Version None)
Quarter: 2004Q3

REPORT INFORMATION
  Report Type: 
  Country: None (occurrence: None)
  Receive Date: 20040719
  Receipt Date: 20040716
  Transmission Date: 20050211
  Serious: Yes (Life-Threatening, Hospitalization)
  Sender: FDA-Public Use
  Company Number: PHBS2004CH09473

PATIENT
  Age: 81 Year
  Sex: Female

DRUGS (6)
  1. DIOVAN [Suspect]
     Indication: HYPERTENSION
     Dosage: 160 MG/DAY
     Dates: start: 20040501, end: 20040701
  2. NORVASC [Concomitant]
     Indication: HYPERTENSION
     Dosage: 10 MG/DAY
     Dates: start: 20040501, end: 20040701
  3. GLUCOPHAGE [Concomitant]
     Indication: DIABETES MELLITUS
     Dates: end: 20040701
  4. AMARYL [Concomitant]
     Indication: DIABETES MELLITUS
     Dosage: 2 MG/DAY
     Dates: end: 20040701
  5. CO-DIOVAN [Concomitant]
     Indication: HYPERTENSION
     Dosage: VAL 160 / HCT 25 MG
     Dates: end: 20040501
  6. ALDACTONE [Suspect]
     Indication: HYPERTENSION
     Dosage: 25 MG/DAY
     Dates: end: 20040701

REACTIONS (10)
  - ATRIOVENTRICULAR BLOCK COMPLETE [None]
  - BLOOD CREATININE INCREASED [None]
  - CONDITION AGGRAVATED [None]
  - DIABETES MELLITUS INADEQUATE CONTROL [None]
  - FALL [None]
  - HYPERKALAEMIA [None]
  - LOSS OF CONSCIOUSNESS [None]
  - MALAISE [None]
  - RENAL FAILURE [None]
  - RESPIRATORY ARREST [None]
